FAERS Safety Report 24630750 (Version 1)
Quarter: 2024Q4

REPORT INFORMATION
  Report Type: Spontaneous
  Country: US (occurrence: None)
  Receive Date: 20241115
  Receipt Date: 20241115
  Transmission Date: 20250114
  Serious: Yes (Hospitalization, Other)
  Sender: Public
  Company Number: None

PATIENT
  Age: 64 Year
  Sex: Female

DRUGS (7)
  1. ZEPOSIA [Suspect]
     Active Substance: OZANIMOD HYDROCHLORIDE
     Indication: Multiple sclerosis
  2. PROAIR HFA ORAL INH [Concomitant]
  3. VALSARTAN/HCTZ [Concomitant]
  4. NEBIVOLOL [Concomitant]
     Active Substance: NEBIVOLOL
  5. ATORVASTATIN [Concomitant]
  6. LEXAPRO [Concomitant]
  7. ASPIRIN 81MG [Concomitant]
     Dosage: FREQUENCY : DAILY;?
     Dates: start: 20241015

REACTIONS (3)
  - Cerebrovascular accident [None]
  - Renal failure [None]
  - Therapy interrupted [None]

NARRATIVE: CASE EVENT DATE: 20241015
